FAERS Safety Report 14991188 (Version 1)
Quarter: 2018Q2

REPORT INFORMATION
  Report Type: Spontaneous
  Country: US (occurrence: US)
  Receive Date: 20180608
  Receipt Date: 20180608
  Transmission Date: 20180711
  Serious: Yes (Death)
  Sender: FDA-Public Use
  Company Number: US-LYNE LABORATORIES INC.-2049177

PATIENT
  Age: 97 Year
  Sex: Female

DRUGS (1)
  1. CHLORHEXIDINE GLUCONATE. [Suspect]
     Active Substance: CHLORHEXIDINE GLUCONATE
     Indication: DENTAL DISORDER PROPHYLAXIS
     Route: 048
     Dates: start: 201805

REACTIONS (2)
  - Swollen tongue [None]
  - Stomatitis [None]
